FAERS Safety Report 6358456-3 (Version None)
Quarter: 2009Q3

REPORT INFORMATION
  Report Type: 
  Country: None (occurrence: None)
  Receive Date: 20090916
  Receipt Date: 20090309
  Transmission Date: 20100115
  Serious: No
  Sender: FDA-Public Use
  Company Number: US-AMGEN-KDL334517

PATIENT
  Age: 63 Year
  Sex: Female
  Weight: 52.2 kg

DRUGS (27)
  1. NEUPOGEN [Suspect]
     Indication: CHEMOTHERAPY
     Route: 058
     Dates: start: 20090216
  2. VALTREX [Concomitant]
  3. MAALOX [Concomitant]
  4. BENADRYL [Concomitant]
  5. MYCOSTATIN [Concomitant]
  6. XYLOCAINE VISCOUS [Concomitant]
  7. LOVENOX [Concomitant]
     Route: 058
  8. TUMS [Concomitant]
     Route: 048
  9. K-DUR [Concomitant]
     Route: 048
  10. LASIX [Concomitant]
     Route: 048
  11. FLOMAX [Concomitant]
     Route: 048
  12. URECHOLINE [Concomitant]
     Route: 048
  13. OSCAL D [Concomitant]
     Route: 048
  14. PROTONIX [Concomitant]
     Route: 042
  15. VASOTEC [Concomitant]
     Route: 042
  16. SODIUM CHLORIDE [Concomitant]
     Route: 042
  17. LOPRESSOR [Concomitant]
  18. ROCEPHIN [Concomitant]
     Route: 042
  19. ZOFRAN [Concomitant]
     Route: 042
  20. VICODIN [Concomitant]
     Route: 048
  21. MORPHINE [Concomitant]
     Route: 042
  22. ATIVAN [Concomitant]
     Route: 042
  23. TYLENOL (CAPLET) [Concomitant]
     Route: 048
  24. XOPENEX [Concomitant]
     Route: 045
  25. XANAX [Concomitant]
     Route: 048
  26. PERCOCET [Concomitant]
     Route: 048
  27. UNSPECIFIED ANTIBIOTIC [Concomitant]

REACTIONS (1)
  - DRUG INEFFECTIVE [None]
